FAERS Safety Report 24724388 (Version 2)
Quarter: 2024Q4

REPORT INFORMATION
  Report Type: Spontaneous
  Country: US (occurrence: US)
  Receive Date: 20241212
  Receipt Date: 20241212
  Transmission Date: 20250114
  Serious: Yes (Hospitalization, Other)
  Sender: ROCHE
  Company Number: US-ROCHE-10000147648

PATIENT
  Age: 69 Year
  Sex: Male

DRUGS (9)
  1. CELLCEPT [Suspect]
     Active Substance: MYCOPHENOLATE MOFETIL
     Indication: Product used for unknown indication
     Route: 065
  2. LUPKYNIS [Suspect]
     Active Substance: VOCLOSPORIN
     Indication: Lupus nephritis
     Dosage: SOFT GEL CAPSULE
     Route: 048
     Dates: start: 20240308, end: 20240604
  3. PREDNISONE [Suspect]
     Active Substance: PREDNISONE
     Indication: Steroid therapy
     Route: 048
     Dates: end: 20240712
  4. PREDNISONE [Suspect]
     Active Substance: PREDNISONE
     Route: 048
     Dates: start: 20240713
  5. PREDNISONE [Suspect]
     Active Substance: PREDNISONE
     Route: 048
  6. MYFORTIC [Suspect]
     Active Substance: MYCOPHENOLATE SODIUM
     Indication: Product used for unknown indication
     Route: 065
  7. ELIQUIS [Concomitant]
     Active Substance: APIXABAN
     Dates: start: 20240712
  8. OXYGEN [Concomitant]
     Active Substance: OXYGEN
  9. CYTOXAN [Concomitant]
     Active Substance: CYCLOPHOSPHAMIDE
     Route: 042
     Dates: start: 20240605

REACTIONS (7)
  - Proteinuria [Unknown]
  - Urine protein/creatinine ratio increased [Unknown]
  - Streptococcal bacteraemia [Recovered/Resolved]
  - Renal failure [Recovered/Resolved]
  - Cellulitis [Recovering/Resolving]
  - Oedema [Recovered/Resolved]
  - Gastrointestinal disorder [Unknown]

NARRATIVE: CASE EVENT DATE: 20240426
